FAERS Safety Report 10648957 (Version 1)
Quarter: 2014Q4

REPORT INFORMATION
  Report Type: Spontaneous
  Country: FR (occurrence: None)
  Receive Date: 20141210
  Receipt Date: 20141210
  Transmission Date: 20150529
  Serious: Yes (Hospitalization, Other)
  Sender: FDA-Public Use
  Company Number: ADR-2014-02298

PATIENT
  Age: 34 Year
  Sex: Female

DRUGS (5)
  1. SEROPLEX [Suspect]
     Active Substance: ESCITALOPRAM OXALATE
     Indication: MAJOR DEPRESSION
     Route: 048
     Dates: start: 20140505
  2. TERCIAN [Suspect]
     Active Substance: CYAMEMAZINE
     Dates: start: 20140819
  3. ATARAX [Suspect]
     Active Substance: HYDROXYZINE\HYDROXYZINE HYDROCHLORIDE
     Route: 048
     Dates: start: 20140505, end: 20140819
  4. LIORESAL [Suspect]
     Active Substance: BACLOFEN
     Route: 048
  5. IMOVANE [Suspect]
     Active Substance: ZOPICLONE
     Route: 048
     Dates: start: 20140519

REACTIONS (8)
  - Fall [None]
  - Skin necrosis [None]
  - Head injury [None]
  - Amnesia [None]
  - Periorbital haemorrhage [None]
  - Loss of consciousness [None]
  - Wound [None]
  - Infection [None]

NARRATIVE: CASE EVENT DATE: 20140823
